FAERS Safety Report 25712249 (Version 3)
Quarter: 2025Q3

REPORT INFORMATION
  Report Type: Spontaneous
  Country: EU (occurrence: EU)
  Receive Date: 20250821
  Receipt Date: 20250902
  Transmission Date: 20251020
  Serious: Yes (Other)
  Sender: MYLAN
  Company Number: EU-BoehringerIngelheim-2025-BI-087413

PATIENT
  Age: 74 Year
  Sex: Female
  Weight: 63 kg

DRUGS (11)
  1. GABAPENTIN [Suspect]
     Active Substance: GABAPENTIN
     Indication: Myelitis
     Dosage: 100 MILLIGRAM, Q3D
  2. PREGABALIN [Suspect]
     Active Substance: PREGABALIN
     Indication: Myelitis
     Dosage: 75 MILLIGRAM, QD
  3. DABIGATRAN [Suspect]
     Active Substance: DABIGATRAN
     Indication: Product used for unknown indication
  4. ACETYLCARNITINE [Suspect]
     Active Substance: ACETYLCARNITINE
     Indication: Myelitis
     Dosage: 1 DOSAGE FORM, QD (1 SACHET/DAY FOR 30 DAYS)
  5. COMIRNATY (TOZINAMERAN) [Suspect]
     Active Substance: TOZINAMERAN
     Indication: Product used for unknown indication
  6. DEXAMETHASONE [Suspect]
     Active Substance: DEXAMETHASONE
     Indication: Myelitis
     Dosage: 8 MILLIGRAM, QD
  7. CHOLECALCIFEROL [Concomitant]
     Active Substance: CHOLECALCIFEROL
     Indication: Product used for unknown indication
     Dosage: 25 GTT DROPS, QW
  8. FUROSEMIDE [Concomitant]
     Active Substance: FUROSEMIDE
     Indication: Product used for unknown indication
     Dosage: 1 DOSAGE FORM, QD
  9. ATORVASTATIN\EZETIMIBE [Concomitant]
     Active Substance: ATORVASTATIN\EZETIMIBE
     Indication: Product used for unknown indication
     Dosage: 1 DOSAGE FORM, QD (10/10 MG TABLET ONCE DAILY )
  10. OLMESARTAN [Concomitant]
     Active Substance: OLMESARTAN
     Indication: Product used for unknown indication
  11. BISOPROLOL [Concomitant]
     Active Substance: BISOPROLOL
     Indication: Product used for unknown indication
     Dosage: 2.5 MILLIGRAM, QD

REACTIONS (6)
  - Myelitis [Recovering/Resolving]
  - Vaccination complication [Recovering/Resolving]
  - Tremor [Recovered/Resolved]
  - Insomnia [Recovering/Resolving]
  - Condition aggravated [Recovering/Resolving]
  - Drug ineffective [Unknown]
